FAERS Safety Report 25839256 (Version 1)
Quarter: 2025Q3

REPORT INFORMATION
  Report Type: Spontaneous
  Country: US (occurrence: US)
  Receive Date: 20250924
  Receipt Date: 20250924
  Transmission Date: 20251021
  Serious: No
  Sender: ROCHE
  Company Number: US-ROCHE-10000392656

PATIENT
  Sex: Female

DRUGS (1)
  1. XOLAIR [Suspect]
     Active Substance: OMALIZUMAB
     Indication: Urticaria
     Dosage: STRENGTH : 150/ML?LAST DOSE ON 06-SEP-2025
     Route: 058
     Dates: start: 202502

REACTIONS (2)
  - Nasal congestion [Recovering/Resolving]
  - Headache [Recovering/Resolving]
